FAERS Safety Report 16464689 (Version 1)
Quarter: 2019Q2

REPORT INFORMATION
  Report Type: Spontaneous
  Country: JP (occurrence: JP)
  Receive Date: 20190621
  Receipt Date: 20190621
  Transmission Date: 20190711
  Serious: Yes (Hospitalization, Other)
  Sender: FDA-Public Use
  Company Number: GXJP2016JP001457

PATIENT
  Age: 34 Year
  Sex: Female
  Weight: 44.4 kg

DRUGS (8)
  1. MAGNESIUM SULFATE. [Suspect]
     Active Substance: MAGNESIUM SULFATE
     Indication: PRODUCT USED FOR UNKNOWN INDICATION
     Dosage: 0.8 G, QH
     Route: 065
  2. HYDROCORTISONE. [Suspect]
     Active Substance: HYDROCORTISONE
     Indication: STEVENS-JOHNSON SYNDROME
     Dosage: 600 MG, QD
     Route: 041
  3. UTERON INTRAVENOUS INFUSION [Suspect]
     Active Substance: RITODRINE HYDROCHLORIDE
     Dosage: 83 UG/MIN
     Route: 065
  4. CLOPIDOGREL [Suspect]
     Active Substance: CLOPIDOGREL BISULFATE
     Indication: BRAIN STEM INFARCTION
     Dosage: 75 MG, QD
     Route: 065
  5. HEPARIN [Suspect]
     Active Substance: HEPARIN SODIUM
     Indication: CEREBELLAR INFARCTION
     Dosage: 10000 IU, QD (10 KU,1 IN 1 D)
     Route: 065
  6. UTERON INTRAVENOUS INFUSION [Suspect]
     Active Substance: RITODRINE HYDROCHLORIDE
     Indication: THREATENED LABOUR
     Dosage: 665 UG, Q5N
     Route: 042
  7. SLONNON [Suspect]
     Active Substance: ARGATROBAN
     Indication: BRAIN STEM INFARCTION
     Dosage: UNK
     Route: 065
  8. ASPIRIN. [Suspect]
     Active Substance: ASPIRIN
     Indication: CEREBELLAR INFARCTION
     Dosage: 100 MG, QD
     Route: 065

REACTIONS (10)
  - Stevens-Johnson syndrome [Recovered/Resolved]
  - Erythema [Unknown]
  - Premature labour [Unknown]
  - Pulmonary alveolar haemorrhage [Recovered/Resolved]
  - Dyspnoea [Unknown]
  - Maternal exposure during pregnancy [Unknown]
  - Respiratory failure [Recovered/Resolved]
  - Rash [Unknown]
  - Anorectal disorder [Unknown]
  - Vulval disorder [Unknown]
